FAERS Safety Report 6766604-6 (Version None)
Quarter: 2010Q2

REPORT INFORMATION
  Report Type: 
  Country: None (occurrence: None)
  Receive Date: 20100611
  Receipt Date: 20100512
  Transmission Date: 20101027
  Serious: No
  Sender: FDA-Public Use
  Company Number: US-BAYER-201023131NA

PATIENT
  Sex: Male
  Weight: 84 kg

DRUGS (2)
  1. ULTRAVIST 370 [Suspect]
     Indication: COMPUTERISED TOMOGRAM ABDOMEN
     Dosage: TOTAL DAILY DOSE: 100 ML  UNIT DOSE: 500 ML
     Route: 042
     Dates: start: 20100511, end: 20100511
  2. ULTRAVIST 370 [Suspect]
     Route: 048
     Dates: start: 20100511, end: 20100511

REACTIONS (2)
  - ORAL PRURITUS [None]
  - URTICARIA [None]
